FAERS Safety Report 6985521-X (Version None)
Quarter: 2010Q3

REPORT INFORMATION
  Report Type: 
  Country: None (occurrence: None)
  Receive Date: 20100915
  Receipt Date: 20100903
  Transmission Date: 20110219
  Serious: Yes (Life-Threatening)
  Sender: FDA-Public Use
  Company Number: FI-JNJFOC-20100901849

PATIENT
  Sex: Male

DRUGS (3)
  1. REMICADE [Suspect]
     Indication: COLITIS ULCERATIVE
     Route: 042
  2. AZAMUN [Concomitant]
     Indication: COLITIS ULCERATIVE
     Dosage: INITIATED PRIOR TO 2006
     Route: 048
  3. ASACOL [Concomitant]
     Indication: COLITIS ULCERATIVE
     Dosage: INITIATED PRIOR TO 2006
     Route: 048

REACTIONS (3)
  - ADENOCARCINOMA [None]
  - LUNG NEOPLASM [None]
  - METASTASES TO SPINE [None]
